FAERS Safety Report 7778120-3 (Version None)
Quarter: 2011Q3

REPORT INFORMATION
  Report Type: 
  Country: None (occurrence: None)
  Receive Date: 20110926
  Receipt Date: 20110921
  Transmission Date: 20111222
  Serious: No
  Sender: FDA-Public Use
  Company Number: US-PFIZER INC-2011224908

PATIENT
  Weight: 72 kg

DRUGS (5)
  1. ZYVOX [Suspect]
     Indication: ENTEROCOCCAL INFECTION
     Dosage: 600 MG, 2X/DAY
     Route: 042
     Dates: start: 20110912
  2. PROTONIX [Concomitant]
     Dosage: UNK
  3. ELECTROLYTE SOLUTIONS [Concomitant]
     Dosage: UNK
  4. TPN [Concomitant]
     Dosage: UNK
  5. CIPROFLOXACIN [Concomitant]
     Dosage: UNK

REACTIONS (3)
  - LIVER FUNCTION TEST ABNORMAL [None]
  - PRODUCT QUALITY ISSUE [None]
  - BLOOD CALCIUM DECREASED [None]
